FAERS Safety Report 26054433 (Version 3)
Quarter: 2025Q4

REPORT INFORMATION
  Report Type: Report from Study
  Country: EU (occurrence: EU)
  Receive Date: 20251117
  Receipt Date: 20251124
  Transmission Date: 20260118
  Serious: Yes (Hospitalization, Other)
  Sender: PFIZER
  Company Number: EU-PFM-2020-02206

PATIENT
  Age: 83 Year
  Sex: Male
  Weight: 81 kg

DRUGS (14)
  1. BRAFTOVI [Suspect]
     Active Substance: ENCORAFENIB
     Indication: Metastatic malignant melanoma
     Dosage: 450 MG, QD (1/DAY)
     Route: 048
     Dates: start: 20200201, end: 20210531
  2. BRAFTOVI [Suspect]
     Active Substance: ENCORAFENIB
     Dosage: 450 MG, QD (1/DAY)
     Route: 048
     Dates: start: 20210719, end: 20220209
  3. MEKTOVI [Suspect]
     Active Substance: BINIMETINIB
     Indication: Metastatic malignant melanoma
     Dosage: 45 MG, BID (2/DAY)
     Route: 048
     Dates: start: 20200201, end: 20210531
  4. MEKTOVI [Suspect]
     Active Substance: BINIMETINIB
     Dosage: 45 MG, BID (2/DAY)
     Route: 048
     Dates: start: 20210719, end: 20220209
  5. AMLODIPINE BESYLATE [Concomitant]
     Active Substance: AMLODIPINE BESYLATE
     Dosage: UNK
     Dates: start: 201909
  6. RASILEZ [Concomitant]
     Active Substance: ALISKIREN
     Dosage: UNK
     Dates: start: 2014
  7. RIFAMPIN [Concomitant]
     Active Substance: RIFAMPIN
     Dosage: UNK
     Dates: start: 201907
  8. PREDNISONE [Concomitant]
     Active Substance: PREDNISONE
     Dosage: UNK
     Dates: start: 201911, end: 20210622
  9. NEBIVOLOL [Concomitant]
     Active Substance: NEBIVOLOL
     Dosage: UNK
     Dates: start: 202001
  10. TORSEMIDE [Concomitant]
     Active Substance: TORSEMIDE
     Dosage: UNK
     Dates: start: 20200128
  11. ACETAMINOPHEN\TRAMADOL HYDROCHLORIDE [Concomitant]
     Active Substance: ACETAMINOPHEN\TRAMADOL HYDROCHLORIDE
     Dosage: UNK
     Dates: start: 20200401
  12. LEVETIRACETAM [Concomitant]
     Active Substance: LEVETIRACETAM
     Indication: Prophylaxis
     Dosage: UNK
     Dates: start: 20210602, end: 20210602
  13. LEVETIRACETAM [Concomitant]
     Active Substance: LEVETIRACETAM
     Indication: Seizure
     Dosage: UNK
     Dates: start: 20210603, end: 20210603
  14. DEXAMETHASONE [Concomitant]
     Active Substance: DEXAMETHASONE
     Indication: Prophylaxis
     Dosage: UNK
     Dates: start: 20210604, end: 20220203

REACTIONS (20)
  - Enterocolitis infectious [Recovered/Resolved]
  - Rectal haemorrhage [Recovered/Resolved]
  - Chills [Recovered/Resolved]
  - Dry mouth [Unknown]
  - Dry skin [Unknown]
  - Dysgeusia [Unknown]
  - Pain in extremity [Unknown]
  - Intertrigo [Unknown]
  - Erythema [Recovered/Resolved]
  - Oedema peripheral [Recovered/Resolved]
  - Hypertension [Unknown]
  - Mucosal infection [Recovered/Resolved]
  - Seizure [Recovered/Resolved]
  - Embolism [Unknown]
  - Pruritus [Unknown]
  - Fibroma [Recovered/Resolved]
  - Fatigue [Unknown]
  - Dizziness [Unknown]
  - Onychomycosis [Unknown]
  - Arthralgia [Unknown]

NARRATIVE: CASE EVENT DATE: 20200210
